FAERS Safety Report 24577837 (Version 1)
Quarter: 2024Q4

REPORT INFORMATION
  Report Type: Spontaneous
  Country: BR (occurrence: BR)
  Receive Date: 20241104
  Receipt Date: 20241104
  Transmission Date: 20250115
  Serious: Yes (Hospitalization)
  Sender: SANDOZ
  Company Number: BR-SANDOZ-SDZ2024BR088457

PATIENT
  Sex: Female

DRUGS (1)
  1. AMOXICILLIN AND CLAVULANATE POTASSIUM [Suspect]
     Active Substance: AMOXICILLIN\CLAVULANATE POTASSIUM
     Indication: Urinary tract infection
     Dosage: 1 TABLET THREE TIMES A DAY (EVERY 8 HOURS)
     Route: 048
     Dates: start: 20241016

REACTIONS (6)
  - Urinary tract infection [Recovering/Resolving]
  - Hyperhidrosis [Recovered/Resolved]
  - Burning sensation [Unknown]
  - Polyuria [Unknown]
  - Diarrhoea [Not Recovered/Not Resolved]
  - Product prescribing error [Unknown]

NARRATIVE: CASE EVENT DATE: 20241016
